FAERS Safety Report 4601207-0 (Version None)
Quarter: 2005Q1

REPORT INFORMATION
  Report Type: 
  Country: None (occurrence: None)
  Receive Date: 20050304
  Receipt Date: 20050223
  Transmission Date: 20050727
  Serious: Yes (Death, Other)
  Sender: FDA-Public Use
  Company Number: USA-2005-0018982

PATIENT
  Age: 21 Year
  Sex: Male

DRUGS (3)
  1. OXYCONTIN [Suspect]
  2. COCAINE (COCAINE) [Suspect]
  3. ALCOHOL (ETHANOL) [Suspect]

REACTIONS (6)
  - ACCIDENTAL OVERDOSE [None]
  - ALCOHOL POISONING [None]
  - DRUG TOXICITY [None]
  - MULTIPLE DRUG OVERDOSE [None]
  - PNEUMONIA ASPIRATION [None]
  - POLYSUBSTANCE ABUSE [None]
